FAERS Safety Report 4573635-3 (Version None)
Quarter: 2005Q1

REPORT INFORMATION
  Report Type: 
  Country: None (occurrence: None)
  Receive Date: 20050203
  Receipt Date: 20050126
  Transmission Date: 20050727
  Serious: Yes (Hospitalization)
  Sender: FDA-Public Use
  Company Number: 211221

PATIENT
  Age: 65 Year
  Sex: Male
  Weight: 53 kg

DRUGS (2)
  1. RITUXAN [Suspect]
     Indication: WALDENSTROM'S MACROGLOBULINAEMIA
     Dosage: 300 MG, INTRAVENOUS
     Route: 042
     Dates: start: 20040826, end: 20040827
  2. AMPHOTERICIN B [Suspect]
     Indication: DRUG USE FOR UNKNOWN INDICATION
     Dates: start: 20040825, end: 20040830

REACTIONS (2)
  - HAEMOLYSIS [None]
  - JAUNDICE [None]
